FAERS Safety Report 21650656 (Version 1)
Quarter: 2022Q4

REPORT INFORMATION
  Report Type: Report from Study
  Country: US (occurrence: US)
  Receive Date: 20221128
  Receipt Date: 20221128
  Transmission Date: 20230112
  Serious: No
  Sender: FDA-Public Use
  Company Number: US-ABBVIE-4159773

PATIENT
  Sex: Male

DRUGS (3)
  1. HUMIRA [Suspect]
     Active Substance: ADALIMUMAB
     Indication: Rheumatoid arthritis
     Dosage: CITRATE FREE
     Route: 058
  2. PFIZER-BIONTECH COVID-19 VACCINE [Concomitant]
     Active Substance: TOZINAMERAN
     Indication: COVID-19 immunisation
     Dosage: 1 IN 1?1ST DOSE
     Route: 030
     Dates: start: 20210803, end: 20210803
  3. PFIZER-BIONTECH COVID-19 VACCINE [Concomitant]
     Active Substance: TOZINAMERAN
     Indication: COVID-19 immunisation
     Dosage: 1 IN 1?2ND DOSE
     Route: 030
     Dates: start: 20210823, end: 20210823

REACTIONS (5)
  - Rheumatoid arthritis [Not Recovered/Not Resolved]
  - Foreign body in eye [Unknown]
  - Cough [Unknown]
  - Purulent discharge [Unknown]
  - Respiratory tract congestion [Unknown]
